FAERS Safety Report 18358186 (Version 1)
Quarter: 2020Q4

REPORT INFORMATION
  Report Type: Spontaneous
  Country: CH (occurrence: CH)
  Receive Date: 20201007
  Receipt Date: 20201007
  Transmission Date: 20210114
  Serious: Yes (Death)
  Sender: FDA-Public Use
  Company Number: CH-ROCHE-2689461

PATIENT
  Age: 58 Year
  Sex: Male

DRUGS (9)
  1. HERCEPTIN [Suspect]
     Active Substance: TRASTUZUMAB
     Indication: ADENOCARCINOMA GASTRIC
     Dosage: CYCLICAL
     Route: 041
     Dates: start: 201807, end: 20200807
  2. OXALIPLATINO SANDOZ [Suspect]
     Active Substance: OXALIPLATIN
     Indication: NEOPLASM PROGRESSION
     Dosage: CYCLICAL
     Route: 041
     Dates: start: 201801, end: 201806
  3. HERCEPTIN [Suspect]
     Active Substance: TRASTUZUMAB
     Indication: ADENOCARCINOMA GASTRIC
     Dosage: DOSAGE ADAPTED?COMBINED WITH 5 FLUOROURACIL/OXALIPLATINE/DOCETAXEL ; CYCLICAL
     Route: 041
     Dates: start: 201801, end: 201806
  4. FLUOROURACILE ACCORD [Suspect]
     Active Substance: FLUOROURACIL
     Indication: NEOPLASM PROGRESSION
     Dosage: CYCLICAL
     Route: 041
     Dates: start: 20200831, end: 20200831
  5. FLUOROURACILE ACCORD [Suspect]
     Active Substance: FLUOROURACIL
     Indication: NEOPLASM PROGRESSION
     Dosage: DOSAGE ADAPTED ; CYCLICAL
     Route: 041
     Dates: start: 201801, end: 201806
  6. DOCETAXEL. [Suspect]
     Active Substance: DOCETAXEL
     Indication: NEOPLASM PROGRESSION
     Dosage: DOSAGE ADAPTED ; CYCLICAL
     Route: 041
     Dates: start: 201801, end: 201806
  7. HERCEPTIN [Suspect]
     Active Substance: TRASTUZUMAB
     Indication: ADENOCARCINOMA GASTRIC
     Route: 041
     Dates: start: 20200831, end: 20200831
  8. OXALIPLATINO SANDOZ [Suspect]
     Active Substance: OXALIPLATIN
     Indication: NEOPLASM PROGRESSION
     Dosage: CYCLICAL
     Route: 041
     Dates: start: 20200831, end: 20200831
  9. DOCETAXEL. [Suspect]
     Active Substance: DOCETAXEL
     Indication: NEOPLASM PROGRESSION
     Dosage: CYCLICAL
     Route: 041
     Dates: start: 20200831, end: 20200831

REACTIONS (1)
  - Cardiac arrest [Fatal]

NARRATIVE: CASE EVENT DATE: 20200904
